FAERS Safety Report 11164090 (Version 3)
Quarter: 2015Q4

REPORT INFORMATION
  Report Type: Report from Study
  Country: JP (occurrence: JP)
  Receive Date: 20150604
  Receipt Date: 20151028
  Transmission Date: 20160304
  Serious: Yes (Other)
  Sender: FDA-Public Use
  Company Number: JP-SA-2015SA076310

PATIENT
  Age: 75 Year
  Sex: Male

DRUGS (4)
  1. JEVTANA [Suspect]
     Active Substance: CABAZITAXEL
     Indication: PROSTATE CANCER
     Dosage: FREQ: EVERY FOUR WEEKS
     Route: 042
     Dates: start: 20150217, end: 20150217
  2. G-LASTA [Concomitant]
     Active Substance: PEGFILGRASTIM
     Dates: start: 201506
  3. JEVTANA [Suspect]
     Active Substance: CABAZITAXEL
     Indication: PROSTATE CANCER
     Route: 042
     Dates: start: 20151014, end: 20151014
  4. JEVTANA [Suspect]
     Active Substance: CABAZITAXEL
     Indication: PROSTATE CANCER
     Dosage: FREQ: EVERY FOUR WEEKS
     Route: 042
     Dates: start: 201505, end: 201505

REACTIONS (1)
  - Hydronephrosis [Not Recovered/Not Resolved]

NARRATIVE: CASE EVENT DATE: 20150601
